FAERS Safety Report 4980111-2 (Version None)
Quarter: 2006Q2

REPORT INFORMATION
  Report Type: 
  Country: None (occurrence: None)
  Receive Date: 20060421
  Receipt Date: 20050919
  Transmission Date: 20061013
  Serious: Yes (Hospitalization, Other)
  Sender: FDA-Public Use
  Company Number: US-MERCK-0509USA02647

PATIENT
  Age: 36 Year
  Sex: Male
  Weight: 136 kg

DRUGS (5)
  1. VIOXX [Suspect]
     Indication: LIMB INJURY
     Route: 048
     Dates: start: 20000101, end: 20030101
  2. VIOXX [Suspect]
     Route: 048
     Dates: start: 20030101, end: 20040901
  3. OXYCONTIN [Concomitant]
     Route: 065
  4. FLEXERIL [Concomitant]
     Route: 065
  5. PERCOCET [Concomitant]
     Route: 065

REACTIONS (11)
  - CARDIAC FAILURE [None]
  - CEREBROVASCULAR ACCIDENT [None]
  - CHEST PAIN [None]
  - HEPATOCELLULAR DAMAGE [None]
  - LIMB INJURY [None]
  - MYOCARDIAL INFARCTION [None]
  - PANCREATITIS [None]
  - PLANTAR FASCIITIS [None]
  - RENAL INJURY [None]
  - THROMBOSIS [None]
  - ULCER [None]
